FAERS Safety Report 13449936 (Version 1)
Quarter: 2017Q2

REPORT INFORMATION
  Report Type: Spontaneous
  Country: US (occurrence: US)
  Receive Date: 20170417
  Receipt Date: 20170417
  Transmission Date: 20170830
  Serious: No
  Sender: FDA-Public Use
  Company Number: US-BION-20160311

PATIENT
  Age: 70 Year
  Sex: Female
  Weight: 62.6 kg

DRUGS (5)
  1. ALEVE [Suspect]
     Active Substance: NAPROXEN SODIUM
     Indication: ARTHRALGIA
     Route: 048
     Dates: start: 2008
  2. WOMEN^S MULTIVITAMIN [Concomitant]
  3. REAL TIME PAIN RELIEF [Concomitant]
  4. CALCIUM SUPPLEMENT [Concomitant]
     Active Substance: CALCIUM
     Dosage: 2 DF QID
  5. ACID REFLUX MEDICATION [Concomitant]
     Active Substance: UNSPECIFIED INGREDIENT

REACTIONS (2)
  - Overdose [Recovered/Resolved]
  - Incorrect drug administration duration [Unknown]

NARRATIVE: CASE EVENT DATE: 2012
